FAERS Safety Report 8488807-5 (Version None)
Quarter: 2012Q3

REPORT INFORMATION
  Report Type: 
  Country: None (occurrence: None)
  Receive Date: 20120705
  Receipt Date: 20120628
  Transmission Date: 20120928
  Serious: Yes (Hospitalization)
  Sender: FDA-Public Use
  Company Number: JP-B.I. PHARMACEUTICALS,INC./RIDGEFIELD-2012-BP-14668NB

PATIENT
  Age: 90 Year
  Sex: Male

DRUGS (2)
  1. PRADAXA [Suspect]
     Indication: ATRIAL FIBRILLATION
     Dosage: 150 MG
     Route: 051
     Dates: start: 20111101, end: 20120301
  2. UNKNOWN DRUG [Concomitant]
     Indication: PARKINSON'S DISEASE
     Route: 065

REACTIONS (4)
  - MELAENA [None]
  - WRONG TECHNIQUE IN DRUG USAGE PROCESS [None]
  - DECUBITUS ULCER [None]
  - PNEUMONIA [None]
